FAERS Safety Report 6997533-0 (Version None)
Quarter: 2010Q3

REPORT INFORMATION
  Report Type: 
  Country: None (occurrence: None)
  Receive Date: 20100918
  Receipt Date: 20091022
  Transmission Date: 20110219
  Serious: No
  Sender: FDA-Public Use
  Company Number: US-WYE-H11850109

PATIENT
  Sex: Male
  Weight: 76.27 kg

DRUGS (7)
  1. TORISEL [Suspect]
     Indication: RENAL CELL CARCINOMA
     Route: 042
     Dates: start: 20090101
  2. ALBUTEROL [Concomitant]
  3. FUROSEMIDE [Concomitant]
  4. LOVASTATIN [Concomitant]
  5. BENADRYL [Concomitant]
  6. WARFARIN SODIUM [Concomitant]
  7. LEVOXYL [Concomitant]

REACTIONS (4)
  - HAEMOGLOBIN DECREASED [None]
  - HYPOACUSIS [None]
  - OEDEMA PERIPHERAL [None]
  - ONYCHOCLASIS [None]
